FAERS Safety Report 25318596 (Version 5)
Quarter: 2025Q2

REPORT INFORMATION
  Report Type: Report from Study
  Country: CA (occurrence: CA)
  Receive Date: 20250515
  Receipt Date: 20250630
  Transmission Date: 20250716
  Serious: Yes (Hospitalization, Other)
  Sender: HLS THERAPEUTICS
  Company Number: CA-HLS-202501281

PATIENT
  Age: 64 Year
  Sex: Male

DRUGS (2)
  1. CLOZARIL [Suspect]
     Active Substance: CLOZAPINE
     Indication: Product used for unknown indication
     Route: 048
     Dates: start: 20121218, end: 20250513
  2. CLOZARIL [Suspect]
     Active Substance: CLOZAPINE
     Indication: Product used for unknown indication
     Route: 048

REACTIONS (6)
  - Astrocytoma [Unknown]
  - Fall [Unknown]
  - Hallucination [Unknown]
  - Therapy interrupted [Recovered/Resolved]
  - Intracranial mass [Unknown]
  - Neoplasm [Unknown]

NARRATIVE: CASE EVENT DATE: 20250513
